FAERS Safety Report 10077596 (Version 2)
Quarter: 2014Q2

REPORT INFORMATION
  Report Type: Spontaneous
  Country: US (occurrence: US)
  Receive Date: 20140414
  Receipt Date: 20140414
  Transmission Date: 20141212
  Serious: No
  Sender: FDA-Public Use
  Company Number: US-BANPHARM-20131950

PATIENT
  Age: 70 Year
  Sex: Male
  Weight: 102.06 kg

DRUGS (5)
  1. ALEVE LIQUID GELS 220 MG [Suspect]
     Dosage: 2 DF, PRN,
     Route: 048
     Dates: start: 2010
  2. BAYER ASPIRIN 81 MG [Suspect]
     Dosage: ONCE DAILY,
     Route: 048
     Dates: end: 2010
  3. BAYER ASPIRIN [Suspect]
  4. FISH OIL [Concomitant]
  5. AMLODIPINE [Concomitant]

REACTIONS (1)
  - Drug ineffective [Unknown]
